FAERS Safety Report 4730256-7 (Version None)
Quarter: 2005Q3

REPORT INFORMATION
  Report Type: 
  Country: None (occurrence: None)
  Receive Date: 20050801
  Receipt Date: 20050712
  Transmission Date: 20060218
  Serious: Yes (Life-Threatening, Hospitalization)
  Sender: FDA-Public Use
  Company Number: JP-ROCHE-410804

PATIENT
  Age: 76 Year
  Sex: Male

DRUGS (6)
  1. CLONAZEPAM [Suspect]
     Route: 048
     Dates: start: 20050617, end: 20050710
  2. ASPIRIN [Suspect]
     Indication: CEREBRAL INFARCTION
     Route: 048
     Dates: start: 20050520, end: 20050712
  3. PRAVASTATIN SODIUM [Concomitant]
     Dosage: TRADE NAME OF DRUG REPORTED AS 'PRAVAMATE'.
     Route: 048
     Dates: start: 20040615
  4. CORTRIL [Concomitant]
     Route: 048
     Dates: start: 20020615
  5. THYRADIN S [Concomitant]
     Route: 048
     Dates: start: 20020615
  6. FASTIC [Concomitant]
     Route: 048
     Dates: start: 20040615

REACTIONS (4)
  - ANAPHYLACTIC SHOCK [None]
  - PYREXIA [None]
  - URTICARIA GENERALISED [None]
  - VOMITING [None]
